FAERS Safety Report 8087585-1 (Version None)
Quarter: 2012Q1

REPORT INFORMATION
  Report Type: 
  Country: None (occurrence: None)
  Receive Date: 20120128
  Receipt Date: 20110525
  Transmission Date: 20120608
  Serious: No
  Sender: FDA-Public Use
  Company Number: US-ABBOTT-11P-163-0728477-00

PATIENT
  Age: 49 Year
  Sex: Female

DRUGS (10)
  1. PROAIR HFA [Concomitant]
     Indication: HYPERSENSITIVITY
     Dosage: PRN
  2. ASACOL [Concomitant]
     Indication: PRODUCT USED FOR UNKNOWN INDICATION
     Dosage: 400MG DAILY
  3. MULTI-VITAMINS [Concomitant]
     Indication: PRODUCT USED FOR UNKNOWN INDICATION
     Dosage: DAILY
  4. PREDNISONE TAB [Concomitant]
     Indication: PRODUCT USED FOR UNKNOWN INDICATION
     Dosage: 10MG DAILY
  5. HUMIRA [Suspect]
  6. UNKNOWN NASAL SPRAY [Concomitant]
     Indication: HYPERSENSITIVITY
     Dosage: PRN
  7. HUMIRA [Suspect]
     Indication: CROHN'S DISEASE
     Dates: start: 20110520, end: 20110520
  8. MERCAPTOPURINE [Concomitant]
     Indication: PRODUCT USED FOR UNKNOWN INDICATION
     Dosage: 1 DAILY
  9. CALCIUM +D [Concomitant]
     Indication: PRODUCT USED FOR UNKNOWN INDICATION
     Dosage: DAILY
  10. OMEPRAZOLE [Concomitant]
     Indication: DYSPEPSIA

REACTIONS (2)
  - MUSCULOSKELETAL STIFFNESS [None]
  - ILL-DEFINED DISORDER [None]
